FAERS Safety Report 10962183 (Version 2)
Quarter: 2015Q2

REPORT INFORMATION
  Report Type: Spontaneous
  Country: US (occurrence: US)
  Receive Date: 20150327
  Receipt Date: 20150403
  Transmission Date: 20150821
  Serious: No
  Sender: FDA-Public Use
  Company Number: US-PFIZER INC-2015104174

PATIENT
  Age: 51 Year
  Sex: Female
  Weight: 73 kg

DRUGS (1)
  1. LYRICA [Suspect]
     Active Substance: PREGABALIN
     Dosage: 100 MG, 2X/DAY

REACTIONS (7)
  - Swelling [Unknown]
  - Lip swelling [Unknown]
  - Peripheral swelling [Unknown]
  - Burning sensation [Unknown]
  - Vascular pain [Unknown]
  - Mouth swelling [Unknown]
  - Pain [Unknown]

NARRATIVE: CASE EVENT DATE: 20150310
